FAERS Safety Report 21575496 (Version 2)
Quarter: 2022Q4

REPORT INFORMATION
  Report Type: Spontaneous
  Country: TR (occurrence: None)
  Receive Date: 20221110
  Receipt Date: 20221207
  Transmission Date: 20230113
  Serious: Yes (Other)
  Sender: FDA-Public Use
  Company Number: TR-ROCHE-3215303

PATIENT
  Age: 37 Year
  Sex: Female
  Weight: 45 kg

DRUGS (1)
  1. PERJETA [Suspect]
     Active Substance: PERTUZUMAB
     Indication: Chemotherapy
     Route: 042
     Dates: start: 20221021, end: 20221021

REACTIONS (2)
  - Respiratory distress [Unknown]
  - Tachycardia [Unknown]

NARRATIVE: CASE EVENT DATE: 20221021
